FAERS Safety Report 6892785-X (Version None)
Quarter: 2010Q3

REPORT INFORMATION
  Report Type: 
  Country: None (occurrence: None)
  Receive Date: 20100731
  Receipt Date: 20080926
  Transmission Date: 20110219
  Serious: Yes (Other)
  Sender: FDA-Public Use
  Company Number: US-PFIZER INC-2008068626

PATIENT
  Sex: Male
  Weight: 92.1 kg

DRUGS (1)
  1. AMLODIPINE [Suspect]
     Indication: HYPERTENSION
     Dosage: QD: EVERYDAY
     Dates: start: 20040315

REACTIONS (2)
  - HEPATITIS A [None]
  - HEPATITIS E [None]
